FAERS Safety Report 16596263 (Version 1)
Quarter: 2019Q3

REPORT INFORMATION
  Report Type: Spontaneous
  Country: DE (occurrence: DE)
  Receive Date: 20190719
  Receipt Date: 20190719
  Transmission Date: 20191004
  Serious: Yes (Death, Life-Threatening, Hospitalization)
  Sender: FDA-Public Use
  Company Number: DE-TEVA-2019-DE-1079193

PATIENT
  Age: 63 Year
  Sex: Male
  Weight: 73 kg

DRUGS (15)
  1. PANTOPRAZOL [Concomitant]
     Active Substance: PANTOPRAZOLE SODIUM
     Dosage: 40 MG, 1-0-0-0, TABLETS
     Route: 048
  2. TRAMADOL. [Concomitant]
     Active Substance: TRAMADOL
     Dosage: 20 MG, IF NECESSARY, PROLONGED-RELEASE TABLETS
     Route: 048
  3. METAMIZOL [Concomitant]
     Active Substance: METAMIZOLE SODIUM
     Dosage: 30 GGT, IF NECESSARY, DROPS
     Route: 048
  4. VIGANTOLETTEN 1000 I.E. [Concomitant]
     Dosage: 1000 IU, 1-0-0-0, TABLETS
     Route: 048
  5. PREGABALIN. [Concomitant]
     Active Substance: PREGABALIN
     Dosage: 75 MG, 1-0-1-0, TABLETS
     Route: 048
  6. CARFILZOMIB [Suspect]
     Active Substance: CARFILZOMIB
     Dosage: NK MG/M2, BY SCHEME, LAST ON 27.02.2018, SOLUTION FOR INJECTION/INFUSION
     Route: 042
  7. REVLIMID [Suspect]
     Active Substance: LENALIDOMIDE
     Dosage: 25 MG, 1-0-0-0 BY SCHEME, LAST ON 04.03.2018, CAPSULES
     Route: 048
  8. ZOMETA 4 MG [Concomitant]
     Dosage: 4 MG, EVERY 4 WEEKS, LAST 15.01.18, SOLUTION FOR INJECTION/INFUSION
     Route: 042
  9. TILIDIN [Concomitant]
     Active Substance: NALOXONE HYDROCHLORIDE\TILIDINE HYDROCHLORIDE
     Dosage: 50 MG, UP TO 2X DAILY IF REQUIRED, PROLONGED-RELEASE TABLETS
     Route: 048
  10. ACICLOVIR [Concomitant]
     Active Substance: ACYCLOVIR
     Dosage: 400 MG, 1-0-1-0, TABLETS
     Route: 048
  11. DEXAMETHASON [Suspect]
     Active Substance: DEXAMETHASONE
     Dosage: 40 MG, 1-0-0-0 BY SCHEME, LAST ON 26.02.2018, TABLETS
     Route: 048
  12. COTRIM FORTE 800MG/160MG [Concomitant]
     Dosage: 960 MG, 1-0-0-0, TABLETS
     Route: 048
  13. SIMVASTATIN. [Concomitant]
     Active Substance: SIMVASTATIN
     Dosage: 20 MG, 0-0-1-0, TABLETS
     Route: 048
  14. VORICONAZOL [Concomitant]
     Active Substance: VORICONAZOLE
     Dosage: 200 MG, 1-0-1-0, TABLETS
     Route: 048
  15. LEVOTHYROXIN-NATRIUM [Concomitant]
     Active Substance: LEVOTHYROXINE SODIUM
     Dosage: 125 MICROGRAMS, 1-0-0-0, TABLETS
     Route: 048

REACTIONS (2)
  - Pyrexia [Unknown]
  - General physical health deterioration [Unknown]
